FAERS Safety Report 18407382 (Version 2)
Quarter: 2021Q4

REPORT INFORMATION
  Report Type: Report from Study
  Country: BE (occurrence: BE)
  Receive Date: 20201020
  Receipt Date: 20211118
  Transmission Date: 20220303
  Serious: Yes (Hospitalization, Other)
  Sender: FDA-Public Use
  Company Number: BE-NOVARTISPH-NVSC2020BE278854

PATIENT
  Sex: Male

DRUGS (3)
  1. SANDOSTATIN LAR DEPOT [Suspect]
     Active Substance: OCTREOTIDE ACETATE
     Indication: Product used for unknown indication
     Dosage: 20 MG
     Route: 030
     Dates: start: 20181009
  2. SANDOSTATIN LAR DEPOT [Suspect]
     Active Substance: OCTREOTIDE ACETATE
  3. SANDOSTATIN LAR DEPOT [Suspect]
     Active Substance: OCTREOTIDE ACETATE

REACTIONS (6)
  - Urinary bladder haemorrhage [Unknown]
  - Wound haemorrhage [Unknown]
  - Palpitations [Unknown]
  - Malaise [Not Recovered/Not Resolved]
  - Blood viscosity decreased [Not Recovered/Not Resolved]
  - Pallor [Not Recovered/Not Resolved]
